FAERS Safety Report 20924423 (Version 1)
Quarter: 2022Q2

REPORT INFORMATION
  Report Type: Spontaneous
  Country: US (occurrence: US)
  Receive Date: 20220607
  Receipt Date: 20220607
  Transmission Date: 20220721
  Serious: Yes (Hospitalization)
  Sender: FDA-Public Use
  Company Number: US-HORIZON THERAPEUTICS-HZN-2022-003539

PATIENT

DRUGS (1)
  1. ACTIMMUNE [Suspect]
     Active Substance: INTERFERON GAMMA-1B
     Indication: Product used for unknown indication
     Dosage: UNK
     Route: 065
     Dates: end: 2018

REACTIONS (4)
  - Pulmonary mass [Unknown]
  - Infection [Unknown]
  - Pyrexia [Unknown]
  - Chills [Unknown]
